FAERS Safety Report 12329580 (Version 5)
Quarter: 2016Q2

REPORT INFORMATION
  Report Type: Report from Study
  Country: ZA (occurrence: ZA)
  Receive Date: 20160503
  Receipt Date: 20160606
  Transmission Date: 20160815
  Serious: Yes (Hospitalization)
  Sender: FDA-Public Use
  Company Number: ZA-ABBVIE-16K-143-1614711-00

PATIENT
  Sex: Female
  Weight: 67 kg

DRUGS (3)
  1. HUMIRA [Suspect]
     Active Substance: ADALIMUMAB
     Indication: PRODUCT USED FOR UNKNOWN INDICATION
     Route: 058
     Dates: end: 20160408
  2. FOLIC ACID. [Concomitant]
     Active Substance: FOLIC ACID
     Indication: PRODUCT USED FOR UNKNOWN INDICATION
  3. METHOTREXATE [Concomitant]
     Active Substance: METHOTREXATE
     Indication: PRODUCT USED FOR UNKNOWN INDICATION

REACTIONS (11)
  - Endometrial disorder [Unknown]
  - Photodermatosis [Unknown]
  - Colonoscopy abnormal [Recovered/Resolved]
  - Adenomyosis [Unknown]
  - Haemoglobin decreased [Not Recovered/Not Resolved]
  - Muscle spasms [Unknown]
  - Menstruation irregular [Not Recovered/Not Resolved]
  - Uterine neoplasm [Unknown]
  - Uterine leiomyoma [Recovering/Resolving]
  - Cervical cyst [Unknown]
  - Basal cell carcinoma [Recovered/Resolved]

NARRATIVE: CASE EVENT DATE: 2015
